FAERS Safety Report 4778532-6 (Version None)
Quarter: 2005Q3

REPORT INFORMATION
  Report Type: 
  Country: None (occurrence: None)
  Receive Date: 20050926
  Receipt Date: 20050803
  Transmission Date: 20060218
  Serious: No
  Sender: FDA-Public Use
  Company Number: US-BRISTOL-MYERS SQUIBB COMPANY-13062401

PATIENT
  Age: 1 Day

DRUGS (1)
  1. REYATAZ [Suspect]
     Route: 064

REACTIONS (3)
  - HYPERBILIRUBINAEMIA [None]
  - LIVER FUNCTION TEST ABNORMAL [None]
  - PREGNANCY [None]
